FAERS Safety Report 8058278-1 (Version None)
Quarter: 2012Q1

REPORT INFORMATION
  Report Type: 
  Country: None (occurrence: None)
  Receive Date: 20120120
  Receipt Date: 20120116
  Transmission Date: 20120608
  Serious: No
  Sender: FDA-Public Use
  Company Number: US-PFIZER INC-2012012812

PATIENT
  Sex: Male
  Weight: 81.633 kg

DRUGS (4)
  1. VICODIN [Suspect]
     Indication: PROCEDURAL PAIN
     Dosage: 1000 MG, DAILY
  2. MORPHINE SULFATE [Suspect]
     Indication: PROCEDURAL PAIN
     Dosage: UNK, DAILY
  3. VICODIN [Suspect]
     Dosage: UNK, DAILY
  4. VICODIN [Suspect]
     Dosage: 500 MG, DAILY

REACTIONS (3)
  - URTICARIA [None]
  - LOCAL SWELLING [None]
  - SWELLING FACE [None]
